FAERS Safety Report 15308323 (Version 2)
Quarter: 2019Q2

REPORT INFORMATION
  Report Type: Spontaneous
  Country: GB (occurrence: GB)
  Receive Date: 20180822
  Receipt Date: 20190419
  Transmission Date: 20190711
  Serious: Yes (Disabling)
  Sender: FDA-Public Use
  Company Number: GB-ANIPHARMA-2018-UK-000083

PATIENT
  Age: 79 Year
  Sex: Male

DRUGS (2)
  1. BICALUTAMIDE. [Suspect]
     Active Substance: BICALUTAMIDE
     Indication: PROSTATE CANCER METASTATIC
  2. GOSERELIN [Suspect]
     Active Substance: GOSERELIN
     Indication: PROSTATE CANCER METASTATIC

REACTIONS (5)
  - Disease progression [Unknown]
  - Paraparesis [Recovered/Resolved with Sequelae]
  - Epidural lipomatosis [Unknown]
  - Prostatic specific antigen increased [Unknown]
  - Blood alkaline phosphatase increased [Unknown]
